FAERS Safety Report 8160099-6 (Version None)
Quarter: 2012Q1

REPORT INFORMATION
  Report Type: 
  Country: None (occurrence: None)
  Receive Date: 20120223
  Receipt Date: 20120217
  Transmission Date: 20120608
  Serious: Yes (Other)
  Sender: FDA-Public Use
  Company Number: CA-PFIZER INC-2011280959

PATIENT
  Age: 66 Year
  Sex: Male

DRUGS (3)
  1. LIPITOR [Concomitant]
     Dosage: 10 MG, 1X/DAY
     Route: 048
  2. XALATAN [Suspect]
     Indication: GLAUCOMA
     Dosage: 1 GTT IN EACH EYE, 1X/DAY
     Route: 047
  3. LIPITOR [Concomitant]
     Indication: BLOOD CHOLESTEROL INCREASED
     Dosage: 20 MG, 1X/DAY
     Route: 048

REACTIONS (1)
  - GLAUCOMA [None]
